FAERS Safety Report 9016723 (Version 2)
Quarter: 2013Q1

REPORT INFORMATION
  Report Type: Report from Study
  Country: US (occurrence: US)
  Receive Date: 20130116
  Receipt Date: 20130130
  Transmission Date: 20140127
  Serious: Yes (Death, Life-Threatening, Hospitalization)
  Sender: FDA-Public Use
  Company Number: US-CELGENEUS-163-50794-13011684

PATIENT
  Age: 74 Year
  Sex: Male
  Weight: 71.1 kg

DRUGS (3)
  1. VIDAZA [Suspect]
     Indication: MYELODYSPLASTIC SYNDROME
     Dosage: 145 MILLIGRAM
     Route: 058
     Dates: start: 20121015, end: 20121221
  2. PLERIXAFOR [Suspect]
     Indication: MYELODYSPLASTIC SYNDROME
     Dosage: 41000 MICROGRAM
     Route: 058
     Dates: start: 20121015, end: 20121221
  3. G-CSF [Suspect]
     Indication: MYELODYSPLASTIC SYNDROME
     Dosage: 362 MICROGRAM
     Route: 058
     Dates: start: 20121015, end: 20121221

REACTIONS (1)
  - Pneumonia [Fatal]
